FAERS Safety Report 4930707-9 (Version None)
Quarter: 2006Q1

REPORT INFORMATION
  Report Type: 
  Country: None (occurrence: None)
  Receive Date: 20060227
  Receipt Date: 20060214
  Transmission Date: 20060701
  Serious: Yes (Other)
  Sender: FDA-Public Use
  Company Number: 2006024368

PATIENT
  Sex: Male
  Weight: 108.8633 kg

DRUGS (7)
  1. VIAGRA [Suspect]
     Indication: ERECTILE DYSFUNCTION
     Dosage: 100 MG (100 MG)
  2. FELODIPINE [Concomitant]
  3. NOVOLIN 70/30 [Concomitant]
  4. POTASSIUM (POTASSIUM) [Concomitant]
  5. ATENOLOL [Concomitant]
  6. ANTACIDS (ANTACIDS) [Concomitant]
  7. CHOLESTEROL- AND TRIGLYCERIDE REDUCERS (CHOLESTEROL- AND TRIGLYCERIDE [Concomitant]

REACTIONS (2)
  - DRUG INEFFECTIVE [None]
  - SPINAL FUSION SURGERY [None]
